FAERS Safety Report 8850550 (Version 2)
Quarter: 2012Q4

REPORT INFORMATION
  Report Type: 
  Country: JP (occurrence: JP)
  Receive Date: 20121019
  Receipt Date: 20121116
  Transmission Date: 20130627
  Serious: Yes (Death, Hospitalization)
  Sender: FDA-Public Use
  Company Number: JP-B.I. PHARMACEUTICALS,INC./RIDGEFIELD-2012-BP-25569NB

PATIENT
  Age: 82 None
  Sex: Female

DRUGS (3)
  1. TRAZENTA [Suspect]
     Indication: TYPE 2 DIABETES MELLITUS
     Dosage: 5 mg
     Route: 065
     Dates: start: 20121001, end: 20121009
  2. AMINOLEBAN EN [Concomitant]
     Indication: HEPATIC FAILURE
     Route: 065
  3. LACTULOSE [Concomitant]
     Indication: HEPATIC FAILURE
     Route: 065

REACTIONS (4)
  - Hepatic cirrhosis [Fatal]
  - Coma hepatic [Not Recovered/Not Resolved]
  - Asterixis [Not Recovered/Not Resolved]
  - Decreased appetite [Unknown]
